FAERS Safety Report 9922181 (Version 1)
Quarter: 2014Q1

REPORT INFORMATION
  Report Type: Spontaneous
  Country: US (occurrence: US)
  Receive Date: 20140225
  Receipt Date: 20140225
  Transmission Date: 20141002
  Serious: Yes (Other)
  Sender: FDA-Public Use
  Company Number: US-PFIZER INC-2014053155

PATIENT
  Sex: 0

DRUGS (1)
  1. XANAX [Suspect]
     Indication: ANXIETY
     Dosage: UNK

REACTIONS (1)
  - Nervous system disorder [Unknown]
